FAERS Safety Report 19986676 (Version 1)
Quarter: 2021Q4

REPORT INFORMATION
  Report Type: Spontaneous
  Country: US (occurrence: US)
  Receive Date: 20211022
  Receipt Date: 20211022
  Transmission Date: 20220303
  Serious: No
  Sender: FDA-Public Use
  Company Number: US-PFIZER INC-202101241048

PATIENT
  Age: 69 Year
  Sex: Female
  Weight: 49.9 kg

DRUGS (1)
  1. NICOTROL [Suspect]
     Active Substance: NICOTINE
     Indication: Smoking cessation therapy
     Dosage: 4 MG (10 MG CARTRIDGE WITH 4 MG DELIVERED)
     Dates: start: 20210910

REACTIONS (4)
  - Device issue [Unknown]
  - Poor quality device used [Unknown]
  - Device difficult to use [Unknown]
  - Dizziness [Unknown]

NARRATIVE: CASE EVENT DATE: 20210910
